FAERS Safety Report 8802955 (Version 1)
Quarter: 2012Q4

REPORT INFORMATION
  Report Type: 
  Country: CN (occurrence: CN)
  Receive Date: 20120922
  Receipt Date: 20120922
  Transmission Date: 20130627
  Serious: Yes (Other)
  Sender: FDA-Public Use
  Company Number: CN-BAYER-2012-097732

PATIENT
  Age: 70 Year
  Sex: Male
  Weight: 56 kg

DRUGS (1)
  1. ACETYLSALICYLIC ACID({=100 MG) [Suspect]
     Indication: THERAPEUTIC PROCEDURE
     Dosage: 0.1 g, QD
     Route: 048
     Dates: start: 20110724, end: 20110805

REACTIONS (1)
  - Thrombocytopenia [Recovered/Resolved]
